FAERS Safety Report 10221951 (Version 1)
Quarter: 2014Q2

REPORT INFORMATION
  Report Type: Spontaneous
  Country: US (occurrence: None)
  Receive Date: 20140606
  Receipt Date: 20140606
  Transmission Date: 20141212
  Serious: Yes (Other)
  Sender: FDA-Public Use
  Company Number: None

PATIENT
  Age: 71 Year
  Sex: Female
  Weight: 56.25 kg

DRUGS (1)
  1. NASONEX [Suspect]
     Indication: SEASONAL ALLERGY
     Dosage: ONCE DAILY INHALATION
     Route: 055
     Dates: start: 20140415, end: 20140522

REACTIONS (5)
  - Urticaria [None]
  - Rash [None]
  - Peripheral swelling [None]
  - Pruritus [None]
  - Erythema [None]
